FAERS Safety Report 9116155 (Version 1)
Quarter: 2013Q1

REPORT INFORMATION
  Report Type: Spontaneous
  Country: US (occurrence: US)
  Receive Date: 20130225
  Receipt Date: 20130225
  Transmission Date: 20140127
  Serious: No
  Sender: FDA-Public Use
  Company Number: US-ENDO PHARMACEUTICALS INC.-FORT20120213

PATIENT
  Age: 59 Year
  Sex: Male
  Weight: 118.04 kg

DRUGS (1)
  1. FORTESTA [Suspect]
     Indication: PRODUCT USED FOR UNKNOWN INDICATION
     Route: 061
     Dates: start: 20120927

REACTIONS (1)
  - Accidental overdose [Recovered/Resolved]
